FAERS Safety Report 8114651-4 (Version None)
Quarter: 2012Q1

REPORT INFORMATION
  Report Type: 
  Country: None (occurrence: None)
  Receive Date: 20120206
  Receipt Date: 20120126
  Transmission Date: 20120608
  Serious: Yes (Death, Other)
  Sender: FDA-Public Use
  Company Number: JP-PFIZER INC-2011295409

PATIENT
  Age: 74 Year
  Sex: Female

DRUGS (6)
  1. PAXIL [Concomitant]
     Indication: DEPRESSIVE SYMPTOM
     Route: 048
  2. VFEND [Suspect]
     Dosage: 400 MG/DAY
     Route: 048
     Dates: start: 20111116
  3. KETAS [Concomitant]
     Indication: DIZZINESS
     Dosage: 30 MG DAILY
     Route: 048
  4. VFEND [Suspect]
     Indication: SYSTEMIC CANDIDA
     Dosage: 400 MG/DAY
     Route: 042
     Dates: start: 20111109, end: 20111115
  5. DEPAKENE [Concomitant]
     Indication: ABNORMAL BEHAVIOUR
     Dosage: 800 MG DAILY
     Route: 048
  6. DEPAS [Concomitant]
     Indication: ANXIETY DISORDER
     Dosage: 0.5 MG DAILY
     Route: 048

REACTIONS (4)
  - TREMOR [None]
  - DECREASED APPETITE [None]
  - SHOCK HAEMORRHAGIC [None]
  - HEPATIC FUNCTION ABNORMAL [None]
